FAERS Safety Report 24040365 (Version 1)
Quarter: 2024Q3

REPORT INFORMATION
  Report Type: Spontaneous
  Country: US (occurrence: None)
  Receive Date: 20240701
  Receipt Date: 20240701
  Transmission Date: 20241017
  Serious: Yes (Life-Threatening, Other)
  Sender: Public
  Company Number: None

PATIENT
  Age: 38 Year
  Sex: Female
  Weight: 49.5 kg

DRUGS (2)
  1. HERBALS\MUSHROOMS UNSPECIFIED [Suspect]
     Active Substance: HERBALS\MUSHROOMS UNSPECIFIED
     Indication: Substance use
     Route: 048
     Dates: start: 20240608, end: 20240608
  2. TYLENOL [Concomitant]

REACTIONS (9)
  - Dizziness [None]
  - Nausea [None]
  - Vomiting [None]
  - Incoherent [None]
  - Somnambulism [None]
  - Headache [None]
  - Sleep terror [None]
  - Chest pain [None]
  - Loss of consciousness [None]

NARRATIVE: CASE EVENT DATE: 20240608
